FAERS Safety Report 8833937 (Version 1)
Quarter: 2012Q4

REPORT INFORMATION
  Report Type: 
  Country: US (occurrence: US)
  Receive Date: 20121010
  Receipt Date: 20121010
  Transmission Date: 20130627
  Serious: Yes (Hospitalization, Other)
  Sender: FDA-Public Use
  Company Number: US-ELI_LILLY_AND_COMPANY-US201209008149

PATIENT
  Age: 42 None
  Sex: Female

DRUGS (3)
  1. CYMBALTA [Suspect]
  2. COPAXONE [Concomitant]
     Indication: MULTIPLE SCLEROSIS
     Dosage: 20 mg, UNK
     Dates: start: 20111010
  3. LISINOPRIL [Concomitant]
     Dosage: UNK
     Dates: end: 201207

REACTIONS (5)
  - Hysterectomy [Unknown]
  - Throat tightness [Unknown]
  - Lip swelling [Unknown]
  - Swelling face [Unknown]
  - Eye swelling [Unknown]
